FAERS Safety Report 23272990 (Version 1)
Quarter: 2023Q4

REPORT INFORMATION
  Report Type: Spontaneous
  Country: US (occurrence: None)
  Receive Date: 20231206
  Receipt Date: 20231206
  Transmission Date: 20240110
  Serious: Yes (Other)
  Sender: FDA-Public Use
  Company Number: None

PATIENT
  Age: 61 Year
  Sex: Female
  Weight: 86.4 kg

DRUGS (11)
  1. NITROFURANTOIN MONO [Suspect]
     Active Substance: NITROFURANTOIN\NITROFURANTOIN MONOHYDRATE
     Indication: Bacterial test
     Dosage: FREQUENCY : TWICE A DAY;?
     Route: 048
     Dates: start: 20231204, end: 20231206
  2. SPRYCEL [Concomitant]
     Active Substance: DASATINIB
  3. LOSARTAN [Concomitant]
     Active Substance: LOSARTAN
  4. ATORVASTATIN [Concomitant]
     Active Substance: ATORVASTATIN
  5. QSYMIA [Concomitant]
     Active Substance: PHENTERMINE HYDROCHLORIDE\TOPIRAMATE
  6. Daily multi vitamin [Concomitant]
  7. VITAMIN D3 [Concomitant]
     Active Substance: CHOLECALCIFEROL
  8. VITAMIN C [Concomitant]
     Active Substance: ASCORBIC ACID
  9. VITAMIN B12 [Concomitant]
     Active Substance: CYANOCOBALAMIN
  10. Hair Skin + Nails supplement [Concomitant]
  11. Vital Proteins professional Skin Hydration + Antioxidants [Concomitant]

REACTIONS (10)
  - Diarrhoea [None]
  - Abdominal pain lower [None]
  - Muscle spasms [None]
  - Nausea [None]
  - Headache [None]
  - Chills [None]
  - Myalgia [None]
  - Insomnia [None]
  - Vulvovaginal discomfort [None]
  - Therapy cessation [None]

NARRATIVE: CASE EVENT DATE: 20231205
